FAERS Safety Report 16787258 (Version 1)
Quarter: 2019Q3

REPORT INFORMATION
  Report Type: Spontaneous
  Country: US (occurrence: US)
  Receive Date: 20190909
  Receipt Date: 20190909
  Transmission Date: 20191005
  Serious: Yes (Life-Threatening, Hospitalization, Other)
  Sender: FDA-Public Use
  Company Number: US-MYLANLABS-2019M1083599

PATIENT
  Age: 23 Month
  Sex: Female

DRUGS (1)
  1. TEMOZOLOMIDE. [Suspect]
     Active Substance: TEMOZOLOMIDE
     Indication: PRODUCT USED FOR UNKNOWN INDICATION
     Dosage: UNK
     Route: 048

REACTIONS (9)
  - Hypotension [Unknown]
  - Cardiomegaly [Unknown]
  - Pancytopenia [Recovering/Resolving]
  - Brain injury [Not Recovered/Not Resolved]
  - Accidental exposure to product by child [Not Recovered/Not Resolved]
  - Bone marrow failure [Recovering/Resolving]
  - Accidental overdose [Not Recovered/Not Resolved]
  - Pulseless electrical activity [Recovered/Resolved]
  - Haemorrhagic transformation stroke [Not Recovered/Not Resolved]
